FAERS Safety Report 6664381-0 (Version None)
Quarter: 2010Q2

REPORT INFORMATION
  Report Type: 
  Country: None (occurrence: None)
  Receive Date: 20100401
  Receipt Date: 20100326
  Transmission Date: 20101027
  Serious: Yes (Hospitalization)
  Sender: FDA-Public Use
  Company Number: GXKR2010JP03593

PATIENT
  Age: 68 Year
  Sex: Male

DRUGS (7)
  1. CYCLOSPORINE [Suspect]
     Indication: APLASTIC ANAEMIA
     Dosage: 5 MG/KG, (300 MG/DAY)
  2. ANTITHYMOCYTE IMMUNOGLOBULIN [Concomitant]
     Dosage: 15 MG/KG, UNK
  3. METHYLPREDNISOLONE [Concomitant]
     Dosage: 2 MG/KG, UNK
  4. PREDNISONE TAB [Concomitant]
     Dosage: 1 MG/KG, (DAY 6-14)
  5. PREDNISONE TAB [Concomitant]
     Dosage: 0.5 MG/KG, (DAY 15-21)
  6. PREDNISONE TAB [Concomitant]
     Dosage: 0.2 MG/KG, (DAY 22-28)
  7. BLOOD TRANSFUSION, AUXILIARY PRODUCTS [Concomitant]
     Indication: ANAEMIA

REACTIONS (3)
  - ANAESTHESIA [None]
  - CEREBRAL INFARCTION [None]
  - HEMIPARESIS [None]
